FAERS Safety Report 20827898 (Version 1)
Quarter: 2022Q2

REPORT INFORMATION
  Report Type: Spontaneous
  Country: US (occurrence: US)
  Receive Date: 20220513
  Receipt Date: 20220513
  Transmission Date: 20220721
  Serious: No
  Sender: FDA-Public Use
  Company Number: US-PFIZER INC-202101394447

PATIENT
  Age: 65 Year
  Sex: Male
  Weight: 70.31 kg

DRUGS (2)
  1. LEVOTHYROXINE SODIUM [Suspect]
     Active Substance: LEVOTHYROXINE SODIUM
     Indication: Hypothyroidism
     Dosage: 125 MCG
     Dates: end: 2021
  2. LEVOTHYROXINE SODIUM [Suspect]
     Active Substance: LEVOTHYROXINE SODIUM
     Dosage: 175 MCG
     Dates: start: 2021

REACTIONS (2)
  - Malaise [Recovering/Resolving]
  - Thyroid function test abnormal [Unknown]

NARRATIVE: CASE EVENT DATE: 20210101
